FAERS Safety Report 4303604-X (Version None)
Quarter: 2004Q1

REPORT INFORMATION
  Report Type: 
  Country: None (occurrence: None)
  Receive Date: 20040225
  Receipt Date: 20040219
  Transmission Date: 20041129
  Serious: Yes (Hospitalization)
  Sender: FDA-Public Use
  Company Number: PHBS2004GR02463

PATIENT
  Age: 74 Year
  Sex: Male

DRUGS (8)
  1. TRILEPTAL [Suspect]
  2. ZOLOFT [Concomitant]
     Dosage: 100 MG, UNK
  3. REMERON [Concomitant]
  4. ROCEPHIN [Concomitant]
  5. LOSEC I.V. [Concomitant]
  6. PULMICORT [Concomitant]
  7. AMINOPHYLLINE [Concomitant]
  8. CLEXANE [Concomitant]

REACTIONS (4)
  - ACUTE RESPIRATORY FAILURE [None]
  - CYANOSIS [None]
  - RENAL IMPAIRMENT [None]
  - VERTIGO [None]
